FAERS Safety Report 10399652 (Version 1)
Quarter: 2014Q3

REPORT INFORMATION
  Report Type: Spontaneous
  Country: CH (occurrence: CH)
  Receive Date: 20140821
  Receipt Date: 20140821
  Transmission Date: 20150326
  Serious: Yes (Other)
  Sender: FDA-Public Use
  Company Number: PHHY2014CH100762

PATIENT
  Age: 60 Year
  Sex: Male

DRUGS (1)
  1. LEPONEX [Suspect]
     Active Substance: CLOZAPINE
     Dosage: 350 MG, PER DAY
     Route: 048

REACTIONS (1)
  - Oesophagitis [Unknown]

NARRATIVE: CASE EVENT DATE: 201407
